FAERS Safety Report 24553215 (Version 3)
Quarter: 2024Q4

REPORT INFORMATION
  Report Type: Spontaneous
  Country: ES (occurrence: ES)
  Receive Date: 20241028
  Receipt Date: 20241205
  Transmission Date: 20250115
  Serious: Yes (Hospitalization, Other)
  Sender: ASTELLAS
  Company Number: ES-ASTELLAS-2024-AER-013410

PATIENT
  Age: 43 Year
  Sex: Female

DRUGS (3)
  1. TACROLIMUS [Suspect]
     Active Substance: TACROLIMUS
     Indication: Renal transplant
     Dosage: DOSE ACCORDING TO BLOOD PLASMA LEVELS
     Route: 048
     Dates: start: 2020, end: 202210
  2. PREDNISONE [Concomitant]
     Active Substance: PREDNISONE
     Indication: Renal transplant
     Route: 065
     Dates: start: 2020, end: 202210
  3. MYCOPHENOLIC ACID [Concomitant]
     Active Substance: MYCOPHENOLIC ACID
     Indication: Renal transplant
     Route: 065
     Dates: start: 2020, end: 2022

REACTIONS (9)
  - Monkeypox [Recovered/Resolved]
  - Skin ulcer [Recovered/Resolved]
  - Pleural effusion [Recovered/Resolved]
  - Pneumonia [Recovered/Resolved]
  - Hypotension [Recovered/Resolved]
  - Tachypnoea [Recovered/Resolved]
  - Generalised oedema [Recovered/Resolved]
  - Thinking abnormal [Recovered/Resolved]
  - Atelectasis [Recovering/Resolving]

NARRATIVE: CASE EVENT DATE: 20220901
